FAERS Safety Report 16642895 (Version 1)
Quarter: 2019Q3

REPORT INFORMATION
  Report Type: Spontaneous
  Country: US (occurrence: US)
  Receive Date: 20190729
  Receipt Date: 20190729
  Transmission Date: 20191004
  Serious: Yes (Other)
  Sender: FDA-Public Use
  Company Number: US-JNJFOC-20190729533

PATIENT
  Age: 57 Year
  Sex: Female
  Weight: 121.67 kg

DRUGS (7)
  1. HUMIRA [Suspect]
     Active Substance: ADALIMUMAB
     Indication: SARCOIDOSIS
     Dosage: IN 0.8 ML
     Route: 058
  2. PREDNISONE. [Concomitant]
     Active Substance: PREDNISONE
     Indication: SARCOIDOSIS
  3. HUMIRA [Suspect]
     Active Substance: ADALIMUMAB
     Dosage: IN 0.4 ML
     Route: 058
     Dates: start: 20181019, end: 2019
  4. SIMPONI ARIA [Suspect]
     Active Substance: GOLIMUMAB
     Route: 065
     Dates: start: 20181115
  5. SIMPONI ARIA [Suspect]
     Active Substance: GOLIMUMAB
     Route: 065
     Dates: start: 20181213
  6. SIMPONI ARIA [Suspect]
     Active Substance: GOLIMUMAB
     Indication: SARCOIDOSIS
     Route: 042
     Dates: start: 20180513
  7. REMICADE [Suspect]
     Active Substance: INFLIXIMAB
     Indication: SARCOIDOSIS
     Route: 042

REACTIONS (5)
  - Lupus-like syndrome [Unknown]
  - Skin discolouration [Recovered/Resolved]
  - Pain in extremity [Recovered/Resolved]
  - Peripheral swelling [Recovered/Resolved]
  - Off label use [Unknown]

NARRATIVE: CASE EVENT DATE: 20181115
